FAERS Safety Report 8279494-X (Version None)
Quarter: 2012Q2

REPORT INFORMATION
  Report Type: 
  Country: None (occurrence: None)
  Receive Date: 20120412
  Receipt Date: 20110624
  Transmission Date: 20120825
  Serious: No
  Sender: FDA-Public Use
  Company Number: US-ASTRAZENECA-2011SE34822

PATIENT
  Age: 78 Year
  Sex: Female

DRUGS (1)
  1. NEXIUM [Suspect]
     Route: 048

REACTIONS (6)
  - FLATULENCE [None]
  - DISCOMFORT [None]
  - PAIN [None]
  - DYSPNOEA [None]
  - PAIN IN JAW [None]
  - DRUG DOSE OMISSION [None]
